FAERS Safety Report 9473801 (Version 1)
Quarter: 2013Q3

REPORT INFORMATION
  Report Type: Spontaneous
  Country: US (occurrence: US)
  Receive Date: 20130823
  Receipt Date: 20130823
  Transmission Date: 20140515
  Serious: No
  Sender: FDA-Public Use
  Company Number: US-BRISTOL-MYERS SQUIBB COMPANY-17002023

PATIENT
  Age: 56 Year
  Sex: Male

DRUGS (6)
  1. SPRYCEL [Suspect]
     Indication: CHRONIC MYELOID LEUKAEMIA
     Route: 048
     Dates: start: 20110624
  2. ALEVE [Concomitant]
     Dosage: TABS
  3. CENTRUM [Concomitant]
     Dosage: TABS
  4. GLUCOSAMINE [Concomitant]
     Dosage: CAPS
  5. PREVACID [Concomitant]
     Dosage: TABS
  6. SAW PALMETTO [Concomitant]

REACTIONS (1)
  - Dermatitis acneiform [Not Recovered/Not Resolved]
